FAERS Safety Report 5051457-7 (Version None)
Quarter: 2006Q3

REPORT INFORMATION
  Report Type: 
  Country: None (occurrence: None)
  Receive Date: 20060710
  Receipt Date: 20060627
  Transmission Date: 20061208
  Serious: Yes (Disabling, Other)
  Sender: FDA-Public Use
  Company Number: 2006074924

PATIENT
  Age: 78 Year
  Sex: Male
  Weight: 103.4201 kg

DRUGS (6)
  1. LIPITOR [Suspect]
     Indication: BLOOD CHOLESTEROL INCREASED
     Dosage: 10 MG (DAILY),
     Dates: end: 20060301
  2. ACETYLSALICYLIC ACID SRT [Concomitant]
  3. LASIX [Concomitant]
  4. ALLEGRA [Concomitant]
  5. ALLOPURINOL [Concomitant]
  6. MULTIVITAMIN [Concomitant]

REACTIONS (7)
  - ABDOMINAL PAIN [None]
  - ARTHRALGIA [None]
  - GROIN PAIN [None]
  - MYALGIA [None]
  - NECK PAIN [None]
  - PAIN [None]
  - SINUSITIS [None]
